FAERS Safety Report 7476118-6 (Version None)
Quarter: 2011Q2

REPORT INFORMATION
  Report Type: 
  Country: None (occurrence: None)
  Receive Date: 20110505
  Receipt Date: 20110425
  Transmission Date: 20111010
  Serious: Yes (Death)
  Sender: FDA-Public Use
  Company Number: 2011040115

PATIENT
  Age: 57 Year
  Sex: Male

DRUGS (2)
  1. FENTANYL [Concomitant]
  2. ONSOLIS [Suspect]
     Dosage: 200 MCG FILMS, TITRATED UP TO 4 FILMS PER DOSE (UP TO 4 TIMES PER DAY), BU
     Route: 002
     Dates: start: 20100201, end: 20100101

REACTIONS (1)
  - DEATH [None]
